FAERS Safety Report 25153994 (Version 1)
Quarter: 2025Q2

REPORT INFORMATION
  Report Type: Spontaneous
  Country: CN (occurrence: CN)
  Receive Date: 20250403
  Receipt Date: 20250403
  Transmission Date: 20250717
  Serious: Yes (Hospitalization)
  Sender: REGENERON
  Company Number: CN-BAYER-2025A044507

PATIENT
  Age: 72 Year
  Sex: Male

DRUGS (2)
  1. EYLEA [Suspect]
     Active Substance: AFLIBERCEPT
     Indication: Macular oedema
     Route: 031
     Dates: start: 20250210, end: 20250210
  2. TRIAMCINOLONE ACETONIDE [Concomitant]
     Active Substance: TRIAMCINOLONE ACETONIDE
     Indication: Macular oedema
     Route: 031
     Dates: start: 20250210, end: 20250210

REACTIONS (2)
  - Vitreous opacities [Recovering/Resolving]
  - Visual impairment [Recovering/Resolving]

NARRATIVE: CASE EVENT DATE: 20250211
